FAERS Safety Report 19154671 (Version 1)
Quarter: 2021Q2

REPORT INFORMATION
  Report Type: Spontaneous
  Country: DE (occurrence: DE)
  Receive Date: 20210419
  Receipt Date: 20210419
  Transmission Date: 20210717
  Serious: Yes (Hospitalization, Other)
  Sender: FDA-Public Use
  Company Number: DE-PFIZER INC-2021380816

PATIENT
  Age: 53 Year
  Sex: Female

DRUGS (6)
  1. PANTOPRAZOLE [Concomitant]
     Active Substance: PANTOPRAZOLE
     Dosage: 40 MG, 1?0?0?0
  2. CYCLOPHOSPHAMID [Suspect]
     Active Substance: CYCLOPHOSPHAMIDE
     Dosage: 1200 MG, LAST ADMINISTRATION ON 14JAN2021
     Dates: start: 20201202, end: 20210114
  3. TRAMADOL. [Concomitant]
     Active Substance: TRAMADOL
     Dosage: UNK UNK, AS NEEDED
  4. EPIRUBICIN HCL [Suspect]
     Active Substance: EPIRUBICIN HYDROCHLORIDE
     Dosage: 180 MG, LAST ADMINISTRATION ON14JAN2021
     Dates: start: 20201202, end: 20210114
  5. LEVOTHYROXINE SODIUM. [Concomitant]
     Active Substance: LEVOTHYROXINE SODIUM
     Dosage: 50 UG, 1?0?0?0
  6. PREDNISOLONE. [Concomitant]
     Active Substance: PREDNISOLONE
     Dosage: 10 MG, 1?0?0?0

REACTIONS (6)
  - Muscular weakness [Unknown]
  - Pancytopenia [Unknown]
  - Pyrexia [Unknown]
  - Urosepsis [Unknown]
  - Condition aggravated [Unknown]
  - Alopecia [Unknown]

NARRATIVE: CASE EVENT DATE: 202101
